FAERS Safety Report 5806341-5 (Version None)
Quarter: 2008Q3

REPORT INFORMATION
  Report Type: 
  Country: None (occurrence: None)
  Receive Date: 20080708
  Receipt Date: 20080626
  Transmission Date: 20090109
  Serious: Yes (Other)
  Sender: FDA-Public Use
  Company Number: CHPA2008US10666

PATIENT
  Age: 29 Year
  Sex: Female

DRUGS (1)
  1. EX-LAX ULTRA LAXATIVE PILLS (NCH) (BISACODYL) TABLET [Suspect]
     Indication: CONSTIPATION
     Dosage: 15 MG, ONCE/SINGLE, ORAL
     Route: 048
     Dates: start: 20080626, end: 20080626

REACTIONS (1)
  - RECTAL HAEMORRHAGE [None]
